FAERS Safety Report 20592090 (Version 1)
Quarter: 2022Q1

REPORT INFORMATION
  Report Type: Spontaneous
  Country: US (occurrence: None)
  Receive Date: 20220314
  Receipt Date: 20220314
  Transmission Date: 20220423
  Serious: No
  Sender: FDA-Public Use
  Company Number: US-ROCHE-2813764

PATIENT
  Sex: Female
  Weight: 84.36 kg

DRUGS (1)
  1. XOLAIR [Suspect]
     Active Substance: OMALIZUMAB
     Indication: Asthma
     Dosage: INJECT 375MG SUBCUTANEOUSLY EVERY 2 WEEK(S)?FORM OF ADMIN (150MG VIAL)
     Route: 058

REACTIONS (3)
  - Product use issue [Unknown]
  - Product use issue [Unknown]
  - Malaise [Unknown]
